FAERS Safety Report 12254459 (Version 2)
Quarter: 2016Q4

REPORT INFORMATION
  Report Type: Spontaneous
  Country: GB (occurrence: GB)
  Receive Date: 20160411
  Receipt Date: 20161229
  Transmission Date: 20170207
  Serious: Yes (Death, Other)
  Sender: FDA-Public Use
  Company Number: GB-MYLANLABS-2016M1014335

PATIENT

DRUGS (6)
  1. RAMIPRIL. [Suspect]
     Active Substance: RAMIPRIL
     Indication: HYPERTENSION
     Dosage: 10 MG, QD
     Route: 048
     Dates: end: 20160320
  2. NUROFEN                            /00109201/ [Suspect]
     Active Substance: IBUPROFEN
     Dosage: 9.6 G, UNK
     Route: 048
     Dates: end: 20160320
  3. PAROXETINE. [Suspect]
     Active Substance: PAROXETINE
     Indication: ANTIDEPRESSANT THERAPY
     Dosage: 40 MG, QD
     Route: 048
     Dates: end: 20160320
  4. RISPERIDONE. [Suspect]
     Active Substance: RISPERIDONE
     Indication: SCHIZOPHRENIA
     Dosage: 3 MG, QD (1MG THE MORNING AND 2MG IN THE EVENING)
     Route: 048
     Dates: end: 20160320
  5. FUROSEMIDE. [Concomitant]
     Active Substance: FUROSEMIDE
     Dosage: UNK
  6. KWELLS [Suspect]
     Active Substance: SCOPOLAMINE HYDROBROMIDE
     Dosage: 300 ?G, QD (AS DIRECTED)
     Route: 048
     Dates: end: 20160320

REACTIONS (10)
  - Hyponatraemia [Not Recovered/Not Resolved]
  - Ventricular tachycardia [Fatal]
  - Urine output decreased [Not Recovered/Not Resolved]
  - Liver function test abnormal [Not Recovered/Not Resolved]
  - Hyperkalaemia [Recovered/Resolved]
  - Renal failure [Not Recovered/Not Resolved]
  - Overdose [Not Recovered/Not Resolved]
  - Blood lactic acid increased [Not Recovered/Not Resolved]
  - Cardio-respiratory arrest [Not Recovered/Not Resolved]
  - Tachyarrhythmia [Not Recovered/Not Resolved]

NARRATIVE: CASE EVENT DATE: 20160321
